FAERS Safety Report 9018210 (Version 1)
Quarter: 2013Q1

REPORT INFORMATION
  Report Type: Spontaneous
  Country: US (occurrence: None)
  Receive Date: 20130111
  Receipt Date: 20130111
  Transmission Date: 20140127
  Serious: Yes (Other)
  Sender: FDA-Public Use
  Company Number: None

PATIENT
  Sex: 0

DRUGS (2)
  1. ALPRAZOLAM [Suspect]
     Indication: PANIC DISORDER
     Dosage: PRN
     Route: 048
     Dates: start: 20121030, end: 20130110
  2. ALPRAZOLAM [Suspect]
     Indication: GENERALISED ANXIETY DISORDER
     Dosage: PRN
     Route: 048
     Dates: start: 20121030, end: 20130110

REACTIONS (6)
  - Drug ineffective [None]
  - Somnolence [None]
  - Condition aggravated [None]
  - Product substitution issue [None]
  - Product substitution issue [None]
  - Product quality issue [None]
